FAERS Safety Report 18042042 (Version 1)
Quarter: 2020Q3

REPORT INFORMATION
  Report Type: Other
  Country: TR (occurrence: TR)
  Receive Date: 20200720
  Receipt Date: 20200720
  Transmission Date: 20201103
  Serious: Yes (Life-Threatening, Hospitalization)
  Sender: FDA-Public Use
  Company Number: TR-EMD SERONO-9173920

PATIENT
  Age: 25 Year
  Sex: Female

DRUGS (1)
  1. METFORMIN [Suspect]
     Active Substance: METFORMIN HYDROCHLORIDE
     Indication: SUICIDE ATTEMPT

REACTIONS (5)
  - Thrombocytopenia [Not Recovered/Not Resolved]
  - Loss of consciousness [Recovered/Resolved]
  - Lactic acidosis [Recovering/Resolving]
  - Overdose [Unknown]
  - Suicide attempt [Unknown]
